FAERS Safety Report 19102181 (Version 1)
Quarter: 2021Q2

REPORT INFORMATION
  Report Type: Spontaneous
  Country: US (occurrence: US)
  Receive Date: 20210407
  Receipt Date: 20210407
  Transmission Date: 20210717
  Serious: Yes (Hospitalization)
  Sender: FDA-Public Use
  Company Number: None

PATIENT
  Age: 77 Year
  Sex: Female

DRUGS (7)
  1. SERTRALINE [Suspect]
     Active Substance: SERTRALINE HYDROCHLORIDE
     Indication: DEPRESSION
     Route: 048
     Dates: start: 20210208, end: 20210401
  2. LORAZEPAM. [Concomitant]
     Active Substance: LORAZEPAM
  3. AMLODIPINE [Concomitant]
     Active Substance: AMLODIPINE BESYLATE
  4. OMEPRAZOLE. [Concomitant]
     Active Substance: OMEPRAZOLE
  5. LISINOPRIL. [Concomitant]
     Active Substance: LISINOPRIL
  6. NITROFURANTOIN. [Concomitant]
     Active Substance: NITROFURANTOIN
  7. TRAZODONE [Suspect]
     Active Substance: TRAZODONE HYDROCHLORIDE
     Indication: DEPRESSION
     Route: 048
     Dates: start: 20201019, end: 20210401

REACTIONS (15)
  - Anxiety [None]
  - Nausea [None]
  - Arthralgia [None]
  - Rash maculo-papular [None]
  - Pyrexia [None]
  - Akathisia [None]
  - Serotonin syndrome [None]
  - Erythema multiforme [None]
  - Confusional state [None]
  - Tachycardia [None]
  - Back pain [None]
  - Syncope [None]
  - Hypertension [None]
  - Neck pain [None]
  - Abdominal pain [None]

NARRATIVE: CASE EVENT DATE: 20210401
